FAERS Safety Report 11895419 (Version 1)
Quarter: 2016Q1

REPORT INFORMATION
  Report Type: Spontaneous
  Country: US (occurrence: None)
  Receive Date: 20160106
  Receipt Date: 20160106
  Transmission Date: 20160526
  Serious: Yes (Other)
  Sender: FDA-Public Use
  Company Number: None

PATIENT
  Age: 35 Year
  Sex: Male
  Weight: 77 kg

DRUGS (1)
  1. CALDOLOR [Suspect]
     Active Substance: IBUPROFEN
     Indication: PAIN MANAGEMENT
     Dosage: 800MG, ONCE INTRAOP, INTRAVENOUS
     Route: 042
     Dates: start: 20151006

REACTIONS (2)
  - Vena cava thrombosis [None]
  - Thrombosis [None]

NARRATIVE: CASE EVENT DATE: 20151021
